FAERS Safety Report 7576768-2 (Version None)
Quarter: 2011Q2

REPORT INFORMATION
  Report Type: 
  Country: None (occurrence: None)
  Receive Date: 20110628
  Receipt Date: 20110616
  Transmission Date: 20111010
  Serious: Yes (Other)
  Sender: FDA-Public Use
  Company Number: AT-CELGENEUS-009-50794-11041409

PATIENT
  Age: 84 Year
  Sex: Male

DRUGS (9)
  1. VIDAZA [Suspect]
     Indication: MYELODYSPLASTIC SYNDROME
     Dosage: 75 MILLIGRAM/SQ. METER
     Route: 058
     Dates: start: 20081219
  2. PLATELETS [Concomitant]
     Route: 065
     Dates: start: 20081201
  3. ALENDRONATE SODIUM [Concomitant]
     Dosage: 10 MILLIGRAM
     Route: 065
  4. VIDAZA [Suspect]
     Dosage: 100 MILLIGRAM
     Route: 058
     Dates: start: 20091005
  5. METHOTREXATE [Concomitant]
     Dosage: 1.4286 MILLIGRAM
     Route: 065
  6. LANSOPRAZOLE [Concomitant]
     Dosage: 15 MILLIGRAM
     Route: 065
  7. CALCIUM/VITAMIN D3 [Concomitant]
     Route: 065
  8. VIDAZA [Suspect]
     Dosage: 100 MILLIGRAM
     Route: 058
     Dates: start: 20091005
  9. BISOPROLOL [Concomitant]
     Dosage: 5 MILLIGRAM
     Route: 065

REACTIONS (5)
  - NEUTROPENIA [None]
  - DIARRHOEA [None]
  - BLOOD CREATININE INCREASED [None]
  - FEMORAL ARTERY OCCLUSION [None]
  - INJECTION SITE ERYTHEMA [None]
